FAERS Safety Report 6133224-6 (Version None)
Quarter: 2009Q1

REPORT INFORMATION
  Report Type: 
  Country: None (occurrence: None)
  Receive Date: 20090324
  Receipt Date: 20090324
  Transmission Date: 20090719
  Serious: Yes (Hospitalization, Other)
  Sender: FDA-Public Use
  Company Number: None

PATIENT
  Sex: Male
  Weight: 156 kg

DRUGS (22)
  1. TYGACIL [Suspect]
     Indication: BACTERIAL SEPSIS
     Dosage: 50MG Q12H IV
     Route: 042
     Dates: start: 20090303, end: 20090314
  2. TYGACIL [Suspect]
     Indication: PNEUMONIA
     Dosage: 50MG Q12H IV
     Route: 042
     Dates: start: 20090303, end: 20090314
  3. ADVAIR HFA [Concomitant]
  4. LANTUS [Concomitant]
  5. MYCOSTATIN POWDER [Concomitant]
  6. NOVOLOG [Concomitant]
  7. ACETAMINOPHEN [Concomitant]
  8. DIAMOX [Concomitant]
  9. LASIX [Concomitant]
  10. LEVAQUIN [Concomitant]
  11. LIDODERM PATH [Concomitant]
  12. MIRALAX [Concomitant]
  13. MUCINEX [Concomitant]
  14. PREDNISONE [Concomitant]
  15. PRILOSEC [Concomitant]
  16. REGLAN [Concomitant]
  17. SINGULAIR [Concomitant]
  18. VASOTEC [Concomitant]
  19. WELCHOL [Concomitant]
  20. ATIVAN [Concomitant]
  21. MORPHINE [Concomitant]
  22. DUONEB [Concomitant]

REACTIONS (2)
  - NEUTROPENIA [None]
  - WHITE BLOOD CELL COUNT DECREASED [None]
